FAERS Safety Report 7022851 (Version 2)
Quarter: 2012Q4

REPORT INFORMATION
  Report Type: 
  Country: BE (occurrence: BE)
  Receive Date: 20090615
  Receipt Date: 20121228
  Transmission Date: 20130627
  Serious: Yes (Hospitalization, Other)
  Sender: FDA-Public Use
  Company Number: BE-ALLERGAN-0908181US

PATIENT
  Age: 77 Year
  Sex: Female

DRUGS (2)
  1. COMBIGAN [Suspect]
     Indication: GLAUCOMA
     Dosage: UNK, unknown
     Route: 047
     Dates: start: 20081201
  2. TRAVATAN [Concomitant]
     Indication: GLAUCOMA
     Dosage: UNK, UNK
     Route: 047
     Dates: start: 200812

REACTIONS (1)
  - Hepatic necrosis [Recovered/Resolved]
